FAERS Safety Report 5908209-2 (Version None)
Quarter: 2008Q4

REPORT INFORMATION
  Report Type: 
  Country: None (occurrence: None)
  Receive Date: 20081006
  Receipt Date: 20080925
  Transmission Date: 20090506
  Serious: Yes (Hospitalization, Disabling, Other)
  Sender: FDA-Public Use
  Company Number: GB-RANBAXY-2008RR-18350

PATIENT
  Age: 62 Year
  Sex: Male

DRUGS (1)
  1. TAMSULOSIN HCL [Suspect]
     Indication: PROSTATISM
     Dosage: 400 UG, QD
     Route: 048
     Dates: start: 20030324, end: 20080118

REACTIONS (3)
  - BLADDER DISTENSION [None]
  - POLLAKIURIA [None]
  - URINARY RETENTION [None]
